FAERS Safety Report 24592309 (Version 1)
Quarter: 2024Q4

REPORT INFORMATION
  Report Type: Spontaneous
  Country: NL (occurrence: NL)
  Receive Date: 20241108
  Receipt Date: 20241108
  Transmission Date: 20250114
  Serious: Yes (Hospitalization)
  Sender: NOVARTIS
  Company Number: None

PATIENT
  Age: 43 Year
  Sex: Female
  Weight: 80 kg

DRUGS (6)
  1. OXCARBAZEPINE [Suspect]
     Active Substance: OXCARBAZEPINE
     Indication: Neuralgia
     Dosage: 300 MG, Q12H, 2X PDAG 1 TABLET 1 WEEK
     Route: 048
     Dates: start: 20240923
  2. OXCARBAZEPINE [Suspect]
     Active Substance: OXCARBAZEPINE
     Dosage: 300 MG, Q8H, EN 3X PDAG 1 TABLET 1 WEEK
     Route: 065
     Dates: start: 202409, end: 20241007
  3. LEVOTHYROXINE [Concomitant]
     Active Substance: LEVOTHYROXINE
     Indication: Product used for unknown indication
     Dosage: 25 UG, LEVOTHYROXINE TABLET 25UG (NATRIUM) / EUTHYROX TABLET 25MCG
     Route: 048
  4. PREGABALIN [Concomitant]
     Active Substance: PREGABALIN
     Indication: Product used for unknown indication
     Dosage: 300 MG
     Route: 048
  5. OMEPRAZOLE [Concomitant]
     Active Substance: OMEPRAZOLE
     Indication: Product used for unknown indication
     Dosage: 20 MG, MAAGSAPRESISTENTE CAPSULE,
     Route: 048
  6. FERROUS FUMARATE [Concomitant]
     Active Substance: FERROUS FUMARATE
     Indication: Product used for unknown indication
     Dosage: 200 MG
     Route: 048

REACTIONS (12)
  - Headache [Recovering/Resolving]
  - Fatigue [Recovering/Resolving]
  - Asthenopia [Recovering/Resolving]
  - Nausea [Recovering/Resolving]
  - Decreased appetite [Recovering/Resolving]
  - Gait disturbance [Recovering/Resolving]
  - Deafness [Recovering/Resolving]
  - Reading disorder [Recovering/Resolving]
  - Dysgraphia [Recovering/Resolving]
  - Vision blurred [Recovering/Resolving]
  - Aphasia [Recovering/Resolving]
  - Syncope [Recovering/Resolving]
